FAERS Safety Report 8861828 (Version 1)
Quarter: 2012Q4

REPORT INFORMATION
  Report Type: 
  Country: US (occurrence: US)
  Receive Date: 20121025
  Receipt Date: 20121025
  Transmission Date: 20130627
  Serious: No
  Sender: FDA-Public Use
  Company Number: US-AMGEN-USASP2012022646

PATIENT
  Sex: Female

DRUGS (15)
  1. ENBREL [Suspect]
     Indication: PRODUCT USED FOR UNKNOWN INDICATION
     Dosage: 50 mg, qwk
     Route: 058
  2. METHOTREXATE [Concomitant]
     Dosage: 2.5 mg, UNK
  3. FOLIC ACID [Concomitant]
     Dosage: UNK
  4. CALCIUM CITRATE + D [Concomitant]
     Dosage: UNK
  5. FISH OIL [Concomitant]
     Dosage: UNK
  6. MULTIVITAMIN                       /00097801/ [Concomitant]
     Dosage: UNK
  7. ASPIRIN (E.C.) [Concomitant]
     Dosage: 81 mg, UNK
  8. CHROMIUM [Concomitant]
     Dosage: 1 mg, UNK
  9. BORON [Concomitant]
     Dosage: 3 mg, UNK
  10. NIACIN [Concomitant]
     Dosage: 500 mg, UNK
  11. HYDROCHLOROTH [Concomitant]
     Dosage: 12.5 mg, UNK
  12. METOPROLOL TARTRATE [Concomitant]
     Dosage: 100 mg, UNK
  13. CALCIUM MAGNESIUM [Concomitant]
     Dosage: UNK
  14. VALACYCLOVIR HCL PHARMA PAC [Concomitant]
     Dosage: 500 mg, UNK
  15. SLEEP AID                          /00000402/ [Concomitant]
     Dosage: 25 mg, UNK

REACTIONS (1)
  - Nasopharyngitis [Unknown]
